FAERS Safety Report 17577640 (Version 1)
Quarter: 2020Q1

REPORT INFORMATION
  Report Type: Report from Study
  Country: None (occurrence: US)
  Receive Date: 20200324
  Receipt Date: 20200324
  Transmission Date: 20200409
  Serious: Yes (Other)
  Sender: FDA-Public Use
  Company Number: US-ABBVIE-20K-163-3333500-00

PATIENT
  Sex: Female

DRUGS (1)
  1. HUMIRA [Suspect]
     Active Substance: ADALIMUMAB
     Indication: PSORIASIS
     Route: 058

REACTIONS (4)
  - Gastrooesophageal reflux disease [Recovered/Resolved]
  - Ankle fracture [Recovered/Resolved]
  - Surgery [Recovered/Resolved]
  - Breast reconstruction [Recovered/Resolved]

NARRATIVE: CASE EVENT DATE: 2015
